FAERS Safety Report 23458687 (Version 2)
Quarter: 2024Q1

REPORT INFORMATION
  Report Type: Spontaneous
  Country: US (occurrence: US)
  Receive Date: 20240130
  Receipt Date: 20240221
  Transmission Date: 20240409
  Serious: No
  Sender: FDA-Public Use
  Company Number: US-JNJFOC-20240160323

PATIENT
  Sex: Male

DRUGS (3)
  1. RISPERDAL [Suspect]
     Active Substance: RISPERIDONE
     Indication: Attention deficit hyperactivity disorder
     Route: 048
  2. RISPERDAL [Suspect]
     Active Substance: RISPERIDONE
     Indication: Autism spectrum disorder
  3. RISPERDAL [Suspect]
     Active Substance: RISPERIDONE
     Indication: Behaviour disorder

REACTIONS (8)
  - Aggression [Unknown]
  - Breast enlargement [Unknown]
  - Weight increased [Not Recovered/Not Resolved]
  - Agitation [Unknown]
  - Hyperphagia [Unknown]
  - Increased appetite [Unknown]
  - Somnolence [Unknown]
  - Drug ineffective [Unknown]
